FAERS Safety Report 20638520 (Version 1)
Quarter: 2022Q1

REPORT INFORMATION
  Report Type: Spontaneous
  Country: FR (occurrence: None)
  Receive Date: 20220325
  Receipt Date: 20220325
  Transmission Date: 20220423
  Serious: Yes (Death)
  Sender: FDA-Public Use
  Company Number: 2022A122210

PATIENT
  Age: 50 Year
  Sex: Female
  Weight: 45 kg

DRUGS (3)
  1. BRICANYL [Suspect]
     Active Substance: TERBUTALINE SULFATE
     Indication: Asthma
     Dosage: YEARS
     Route: 055
  2. PULMICORT TURBUHALER [Suspect]
     Active Substance: BUDESONIDE
     Indication: Asthma
     Dosage: YEARS
     Route: 055
  3. COMIRNATY [Suspect]
     Active Substance: TOZINAMERAN
     Indication: COVID-19 immunisation
     Dosage: D21.0DF ONCE/SINGLE ADMINISTRATION
     Route: 030
     Dates: start: 20210722, end: 20210722

REACTIONS (3)
  - Respiratory distress [Fatal]
  - Cardiac arrest [Fatal]
  - Acute left ventricular failure [Fatal]

NARRATIVE: CASE EVENT DATE: 20210825
